FAERS Safety Report 17824926 (Version 1)
Quarter: 2020Q2

REPORT INFORMATION
  Report Type: Spontaneous
  Country: US (occurrence: US)
  Receive Date: 20200526
  Receipt Date: 20200526
  Transmission Date: 20200714
  Serious: Yes (Other)
  Sender: FDA-Public Use
  Company Number: None

PATIENT
  Age: 52 Year
  Sex: Male
  Weight: 65.3 kg

DRUGS (11)
  1. VANCOMYCIN IV [Concomitant]
     Active Substance: VANCOMYCIN HYDROCHLORIDE
     Dates: start: 20200520, end: 20200520
  2. ACETAMINOPHEN TAB [Concomitant]
     Dates: start: 20200520, end: 20200526
  3. AZITHROMYCIN IV [Concomitant]
     Dates: start: 20200520, end: 20200524
  4. ENOXAPARIN [Concomitant]
     Active Substance: ENOXAPARIN
     Dates: start: 20200520, end: 20200526
  5. POTASSIUM + SODIUM PHOSPHATES PACKET [Concomitant]
     Dates: start: 20200522, end: 20200523
  6. REMDESIVIR. [Suspect]
     Active Substance: REMDESIVIR
     Indication: COVID-19
     Route: 040
     Dates: start: 20200520, end: 20200523
  7. CEFTRIAXONE IV [Concomitant]
     Dates: start: 20200520, end: 20200526
  8. BENZONATATE. [Concomitant]
     Active Substance: BENZONATATE
     Dates: start: 20200522, end: 20200524
  9. FAMOTIDINE IV [Concomitant]
     Dates: start: 20200521, end: 20200526
  10. METOPROLOL IV [Concomitant]
     Dates: start: 20200520, end: 20200520
  11. POTASSIUM CHLORIDE TAB [Concomitant]
     Dates: start: 20200523, end: 20200523

REACTIONS (4)
  - Alanine aminotransferase increased [None]
  - Aspartate aminotransferase increased [None]
  - Therapy cessation [None]
  - Inflammatory marker increased [None]

NARRATIVE: CASE EVENT DATE: 20200524
